FAERS Safety Report 12719313 (Version 5)
Quarter: 2017Q1

REPORT INFORMATION
  Report Type: Spontaneous
  Country: US (occurrence: US)
  Receive Date: 20160907
  Receipt Date: 20170124
  Transmission Date: 20170428
  Serious: Yes (Hospitalization)
  Sender: FDA-Public Use
  Company Number: US-ASTRAZENECA-2016SE93608

PATIENT
  Age: 79 Year
  Sex: Male
  Weight: 81.6 kg

DRUGS (3)
  1. DOCYCYCLINE [Concomitant]
     Indication: LOCALISED INFECTION
     Route: 048
     Dates: start: 20160829
  2. SYMBICORT [Suspect]
     Active Substance: BUDESONIDE\FORMOTEROL FUMARATE DIHYDRATE
     Indication: ASTHMA
     Dosage: 160/4.5, TWO PUFFS TWICE PER DAY
     Route: 055
     Dates: start: 2013
  3. ASTETRO [Concomitant]
     Indication: CONJUNCTIVAL HYPERAEMIA
     Dosage: 0.5 % NASAL SPRAY TWO SPRAYS EACH NOSTRAL TWICE PER DAY
     Route: 045

REACTIONS (10)
  - Memory impairment [Unknown]
  - Intentional product misuse [Unknown]
  - Hypoacusis [Unknown]
  - Oropharyngeal discomfort [Unknown]
  - Product quality issue [Unknown]
  - Cardiac failure congestive [Unknown]
  - Localised infection [Recovered/Resolved]
  - Speech disorder [Unknown]
  - Off label use [Unknown]
  - Product use issue [Unknown]

NARRATIVE: CASE EVENT DATE: 2016
